FAERS Safety Report 15251660 (Version 1)
Quarter: 2018Q3

REPORT INFORMATION
  Report Type: Spontaneous
  Country: US (occurrence: US)
  Receive Date: 20180807
  Receipt Date: 20180807
  Transmission Date: 20181010
  Serious: No
  Sender: FDA-Public Use
  Company Number: US-KVK-TECH, INC-2053397

PATIENT

DRUGS (1)
  1. PHENTERMINE HYDROCHLORIDE. [Suspect]
     Active Substance: PHENTERMINE HYDROCHLORIDE
     Indication: PRODUCT USED FOR UNKNOWN INDICATION
     Route: 065

REACTIONS (9)
  - Headache [Unknown]
  - Joint stiffness [Unknown]
  - Eye pain [Unknown]
  - Joint swelling [Unknown]
  - Peripheral coldness [Unknown]
  - Feeling cold [Unknown]
  - Myalgia [Unknown]
  - Arthralgia [Unknown]
  - Eye haemorrhage [Unknown]
